FAERS Safety Report 6541024-8 (Version None)
Quarter: 2010Q1

REPORT INFORMATION
  Report Type: 
  Country: None (occurrence: None)
  Receive Date: 20100118
  Receipt Date: 20100112
  Transmission Date: 20100710
  Serious: Yes (Other)
  Sender: FDA-Public Use
  Company Number: JP-BRISTOL-MYERS SQUIBB COMPANY-14932529

PATIENT
  Age: 76 Year
  Sex: Female

DRUGS (6)
  1. VEPESID [Suspect]
     Indication: ADULT T-CELL LYMPHOMA/LEUKAEMIA
  2. CYCLOPHOSPHAMIDE [Suspect]
     Indication: ADULT T-CELL LYMPHOMA/LEUKAEMIA
  3. STEROIDS [Suspect]
     Indication: ADULT T-CELL LYMPHOMA/LEUKAEMIA
  4. PIRARUBICIN [Suspect]
     Indication: ADULT T-CELL LYMPHOMA/LEUKAEMIA
     Route: 042
  5. VINCRISTINE SULFATE [Suspect]
     Indication: ADULT T-CELL LYMPHOMA/LEUKAEMIA
     Route: 042
  6. PREDNISOLONE [Suspect]
     Indication: ADULT T-CELL LYMPHOMA/LEUKAEMIA

REACTIONS (1)
  - HEPATITIS B [None]
